FAERS Safety Report 9319838 (Version 3)
Quarter: 2013Q3

REPORT INFORMATION
  Report Type: Spontaneous
  Country: JP (occurrence: JP)
  Receive Date: 20130530
  Receipt Date: 20130919
  Transmission Date: 20140515
  Serious: Yes (Hospitalization, Other)
  Sender: FDA-Public Use
  Company Number: JP-BRISTOL-MYERS SQUIBB COMPANY-18953018

PATIENT
  Sex: 0

DRUGS (1)
  1. HYDREA CAPS [Suspect]
     Indication: POLYCYTHAEMIA VERA
     Route: 048

REACTIONS (2)
  - Leukaemia [Unknown]
  - Myelofibrosis [Unknown]
